FAERS Safety Report 4674363-6 (Version None)
Quarter: 2005Q2

REPORT INFORMATION
  Report Type: 
  Country: None (occurrence: None)
  Receive Date: 20050524
  Receipt Date: 20050509
  Transmission Date: 20051028
  Serious: Yes (Other)
  Sender: FDA-Public Use
  Company Number: USA050597681

PATIENT
  Age: 81 Year
  Sex: Female

DRUGS (1)
  1. FORTEO [Suspect]
     Indication: OSTEOPOROSIS
     Dates: start: 20031201

REACTIONS (4)
  - CONDITION AGGRAVATED [None]
  - MOVEMENT DISORDER [None]
  - PARKINSON'S DISEASE [None]
  - TREMOR [None]
